FAERS Safety Report 16904907 (Version 3)
Quarter: 2020Q1

REPORT INFORMATION
  Report Type: Spontaneous
  Country: US (occurrence: US)
  Receive Date: 20191010
  Receipt Date: 20200108
  Transmission Date: 20200409
  Serious: Yes (Hospitalization)
  Sender: FDA-Public Use
  Company Number: US-GLAXOSMITHKLINE-US2019AMR181453

PATIENT
  Age: 71 Year
  Sex: Female
  Weight: 45.35 kg

DRUGS (4)
  1. ORENITRAM [Concomitant]
     Active Substance: TREPROSTINIL
     Dosage: 2.75 MG, TID
     Route: 065
     Dates: start: 20190924
  2. ORENITRAM [Concomitant]
     Active Substance: TREPROSTINIL
     Indication: PULMONARY ARTERIAL HYPERTENSION
     Dosage: 2.75 MG, TID
     Route: 048
     Dates: start: 20190924
  3. FLOLAN [Suspect]
     Active Substance: EPOPROSTENOL SODIUM
     Indication: PULMONARY ARTERIAL HYPERTENSION
     Dosage: 19 DF, NG/KG/MIN
     Route: 065
     Dates: start: 20180309
  4. FLOLAN DILUENT PH 12 [Suspect]
     Active Substance: GLYCINE\MANNITOL\SODIUM CHLORIDE
     Indication: PULMONARY ARTERIAL HYPERTENSION
     Dosage: UNK
     Route: 065
     Dates: start: 20180309

REACTIONS (7)
  - Catheter removal [Unknown]
  - Headache [Unknown]
  - Pain [Unknown]
  - Therapy change [Recovered/Resolved]
  - Hospitalisation [Recovered/Resolved]
  - Diarrhoea [Unknown]
  - Flushing [Unknown]

NARRATIVE: CASE EVENT DATE: 20190930
